FAERS Safety Report 10309034 (Version 2)
Quarter: 2014Q3

REPORT INFORMATION
  Report Type: Spontaneous
  Country: IT (occurrence: IT)
  Receive Date: 20140716
  Receipt Date: 20140926
  Transmission Date: 20150326
  Serious: Yes (Hospitalization, Congenital Anomaly)
  Sender: FDA-Public Use
  Company Number: IT-ELI_LILLY_AND_COMPANY-IT201407002306

PATIENT

DRUGS (1)
  1. HUMALOG [Suspect]
     Active Substance: INSULIN LISPRO
     Indication: GESTATIONAL DIABETES
     Dosage: 20 IU, QD
     Route: 064

REACTIONS (3)
  - Vascular shunt [Recovering/Resolving]
  - Atrial septal defect [Recovering/Resolving]
  - Foetal exposure during pregnancy [Recovered/Resolved]
